FAERS Safety Report 4291509-2 (Version None)
Quarter: 2004Q1

REPORT INFORMATION
  Report Type: 
  Country: None (occurrence: None)
  Receive Date: 20040126
  Receipt Date: 20030909
  Transmission Date: 20041129
  Serious: No
  Sender: FDA-Public Use
  Company Number: USA030946659

PATIENT
  Age: 66 Year
  Sex: Female

DRUGS (10)
  1. FORTEO [Suspect]
     Indication: OSTEOPOROSIS
     Dosage: 20 UG/DAY
     Dates: start: 20030806
  2. EFFEXOR [Concomitant]
  3. SINGULAIR [Concomitant]
  4. METHOTREXATE [Concomitant]
  5. PREMARIN(ESTORGENS CONJUGATED) [Concomitant]
  6. PREVACID [Concomitant]
  7. DURAGESIC [Concomitant]
  8. LUMIGAN [Concomitant]
  9. CLONAZEPAM [Concomitant]
  10. NEURONTIN [Concomitant]

REACTIONS (2)
  - DIZZINESS [None]
  - HIRSUTISM [None]
